FAERS Safety Report 16349369 (Version 2)
Quarter: 2020Q2

REPORT INFORMATION
  Report Type: Spontaneous
  Country: US (occurrence: US)
  Receive Date: 20190523
  Receipt Date: 20200416
  Transmission Date: 20200713
  Serious: Yes (Life-Threatening, Hospitalization)
  Sender: FDA-Public Use
  Company Number: US-TEVA-2019-US-1052751

PATIENT
  Age: 16 Year
  Sex: Female

DRUGS (2)
  1. 5-FLUOROURACIL [Suspect]
     Active Substance: FLUOROURACIL
     Indication: NASOPHARYNGEAL CANCER
     Dosage: 1000 MG/M2 DAILY; CONTINUOUS INFUSION; 3 CYCLES ON DAY 1-4
     Route: 050
  2. CISPLATIN. [Concomitant]
     Active Substance: CISPLATIN
     Indication: NASOPHARYNGEAL CANCER
     Dosage: 3 CYCLES; ON DAY 1
     Route: 065

REACTIONS (3)
  - Sinus tachycardia [Unknown]
  - Cardiomyopathy [Recovered/Resolved]
  - Hypotension [Unknown]
